FAERS Safety Report 15922023 (Version 5)
Quarter: 2019Q3

REPORT INFORMATION
  Report Type: Spontaneous
  Country: JP (occurrence: JP)
  Receive Date: 20190206
  Receipt Date: 20190718
  Transmission Date: 20191004
  Serious: Yes (Death, Hospitalization, Other)
  Sender: FDA-Public Use
  Company Number: JP-BRISTOL-MYERS SQUIBB COMPANY-BMS-2019-010268

PATIENT
  Age: 62 Year
  Sex: Male
  Weight: 44.8 kg

DRUGS (3)
  1. CALONAL [Suspect]
     Active Substance: ACETAMINOPHEN
     Indication: CANCER PAIN
     Dosage: 500 MILLIGRAM, Q6H
     Route: 050
     Dates: start: 20181114, end: 20181121
  2. CALONAL [Suspect]
     Active Substance: ACETAMINOPHEN
     Indication: PRODUCT USED FOR UNKNOWN INDICATION
     Dosage: 600 MILLIGRAM, Q6H
     Route: 050
     Dates: start: 20181122, end: 20190124
  3. OPDIVO [Suspect]
     Active Substance: NIVOLUMAB
     Indication: HEAD AND NECK CANCER
     Dosage: 240 MG
     Route: 041
     Dates: start: 20190108, end: 20190122

REACTIONS (6)
  - General physical health deterioration [Not Recovered/Not Resolved]
  - Liver disorder [Recovering/Resolving]
  - Diabetes mellitus [Unknown]
  - Malignant neoplasm progression [Fatal]
  - Depressed level of consciousness [Not Recovered/Not Resolved]
  - Adrenal disorder [Unknown]

NARRATIVE: CASE EVENT DATE: 20190118
